FAERS Safety Report 24429056 (Version 4)
Quarter: 2024Q4

REPORT INFORMATION
  Report Type: Report from Study
  Country: AR (occurrence: AR)
  Receive Date: 20241011
  Receipt Date: 20241126
  Transmission Date: 20250115
  Serious: Yes (Life-Threatening, Hospitalization, Other)
  Sender: INCYTE
  Company Number: AR-002147023-NVSC2023AR034079

PATIENT

DRUGS (7)
  1. RUXOLITINIB [Suspect]
     Active Substance: RUXOLITINIB
     Indication: Myelofibrosis
     Dosage: 40 MG, QD
     Route: 048
     Dates: start: 20210806
  2. RUXOLITINIB [Suspect]
     Active Substance: RUXOLITINIB
     Dosage: 20 MG, QD
     Route: 048
  3. RUXOLITINIB [Suspect]
     Active Substance: RUXOLITINIB
     Dosage: 2 OF 20 MG ,QD
     Route: 065
  4. RUXOLITINIB [Suspect]
     Active Substance: RUXOLITINIB
     Dosage: 1 OF 20 MG ,QD
     Route: 065
  5. RUXOLITINIB [Suspect]
     Active Substance: RUXOLITINIB
     Dosage: 30 MG, QD
     Route: 048
  6. RUXOLITINIB [Suspect]
     Active Substance: RUXOLITINIB
     Dosage: 15 MG, QD
     Route: 048
  7. RUXOLITINIB [Suspect]
     Active Substance: RUXOLITINIB
     Dosage: 10 MG, QD
     Route: 048

REACTIONS (18)
  - Agitation [Unknown]
  - Bronchitis [Unknown]
  - Cataract [Unknown]
  - Visual impairment [Unknown]
  - Haemoptysis [Unknown]
  - Drug ineffective [Unknown]
  - Erythema [Unknown]
  - Asthenia [Unknown]
  - Decreased immune responsiveness [Unknown]
  - Wrong technique in product usage process [Unknown]
  - Platelet count decreased [Unknown]
  - Leukaemia [Unknown]
  - Petechiae [Unknown]
  - Fatigue [Unknown]
  - Inappropriate schedule of product administration [Unknown]
  - Metastasis [Unknown]
  - Pyrexia [Unknown]
  - White blood cell count increased [Recovered/Resolved]

NARRATIVE: CASE EVENT DATE: 20210101
